FAERS Safety Report 17127254 (Version 5)
Quarter: 2020Q3

REPORT INFORMATION
  Report Type: Other
  Country: CA (occurrence: CA)
  Receive Date: 20191209
  Receipt Date: 20200720
  Transmission Date: 20201102
  Serious: Yes (Hospitalization, Other)
  Sender: FDA-Public Use
  Company Number: CA-ROCHE-2491046

PATIENT
  Age: 32 Year
  Sex: Female

DRUGS (8)
  1. ZADITEN [Concomitant]
     Active Substance: KETOTIFEN FUMARATE
     Route: 048
     Dates: start: 20180124
  2. XOLAIR [Suspect]
     Active Substance: OMALIZUMAB
     Route: 058
     Dates: start: 201908
  3. PROPANOLOL [Concomitant]
     Active Substance: PROPRANOLOL HYDROCHLORIDE
     Indication: PRODUCT USED FOR UNKNOWN INDICATION
     Dosage: 10 MG, TID
     Route: 065
  4. MONTELUKAST [Concomitant]
     Active Substance: MONTELUKAST SODIUM
     Indication: ASTHMA
     Dates: start: 20180124
  5. XOLAIR [Suspect]
     Active Substance: OMALIZUMAB
     Indication: CHRONIC SPONTANEOUS URTICARIA
     Route: 058
     Dates: start: 20180306
  6. XOLAIR [Suspect]
     Active Substance: OMALIZUMAB
     Route: 058
  7. XOLAIR [Suspect]
     Active Substance: OMALIZUMAB
     Route: 058
     Dates: start: 20191023
  8. IVABRADINE [Concomitant]
     Active Substance: IVABRADINE
     Indication: PRODUCT USED FOR UNKNOWN INDICATION
     Dosage: 5 MG, BID
     Route: 065

REACTIONS (18)
  - Lymphadenitis [Unknown]
  - Dizziness [Unknown]
  - Inappropriate schedule of product administration [Unknown]
  - Dysstasia [Unknown]
  - Asthma [Unknown]
  - Hypoaesthesia [Unknown]
  - Retching [Unknown]
  - Autonomic nervous system imbalance [Unknown]
  - Chest discomfort [Unknown]
  - Pruritus [Unknown]
  - Postural orthostatic tachycardia syndrome [Unknown]
  - Palpitations [Unknown]
  - Erythema [Unknown]
  - Heart rate increased [Unknown]
  - Illness [Unknown]
  - Urticaria [Not Recovered/Not Resolved]
  - Presyncope [Unknown]
  - Dysphagia [Unknown]

NARRATIVE: CASE EVENT DATE: 2019
